FAERS Safety Report 21788614 (Version 2)
Quarter: 2023Q1

REPORT INFORMATION
  Report Type: Report from Study
  Country: CN (occurrence: CN)
  Receive Date: 20221228
  Receipt Date: 20230111
  Transmission Date: 20230418
  Serious: Yes (Hospitalization)
  Sender: FDA-Public Use
  Company Number: CN-G1 THERAPEUTICS-2022G1CN0000180

PATIENT

DRUGS (28)
  1. TRILACICLIB [Suspect]
     Active Substance: TRILACICLIB
     Indication: Myelosuppression
     Dosage: 357.6 MG: 240 MG/M2 ADMINISTERED ON DAY 1 AND 8 OF A 21-DAY CYCLE
     Route: 041
     Dates: start: 20220616, end: 20220714
  2. TRILACICLIB [Suspect]
     Active Substance: TRILACICLIB
     Dosage: 357.6 MG: 240 MG/M2 ADMINISTERED ON DAY 1 AND 8 OF A 21-DAY CYCLE
     Route: 041
     Dates: start: 20220728
  3. CARBOPLATIN [Suspect]
     Active Substance: CARBOPLATIN
     Indication: Breast cancer metastatic
     Dosage: 218 MG: AUC2 ADMINISTERED ON DAY 1 AND 8 OF A 21-DAY CYCLE
     Route: 041
     Dates: start: 20220616, end: 20220714
  4. CARBOPLATIN [Suspect]
     Active Substance: CARBOPLATIN
     Dosage: 218 MG; AUC2 ADMINISTERED ON DAY 1 AND 8 OF A 21-DAY CYCLE
     Route: 041
     Dates: start: 20220728
  5. GEMCITABINE [Suspect]
     Active Substance: GEMCITABINE
     Indication: Breast cancer metastatic
     Dosage: 1490 MG: 1000 MG/M2 ADMINISTERED ON DAY 1 AND 8 OF A 21-DAY CYCLE
     Route: 041
     Dates: start: 20220616, end: 20220714
  6. GEMCITABINE [Suspect]
     Active Substance: GEMCITABINE
     Dosage: 1192 MG; 800 MG/M2 ADMINISTERED ON DAY 1 AND 8 OF A 21-DAY CYCLE
     Route: 041
     Dates: start: 20220728
  7. PHOSPHOLIPID [Concomitant]
     Active Substance: PHOSPHOLIPID
     Indication: Aspartate aminotransferase increased
     Dosage: 456 MG, TID
     Route: 048
     Dates: start: 20220616
  8. PHOSPHOLIPID [Concomitant]
     Active Substance: PHOSPHOLIPID
     Indication: Gamma-glutamyltransferase increased
  9. ESOMEPRAZOLE SODIUM [Concomitant]
     Active Substance: ESOMEPRAZOLE SODIUM
     Indication: Prophylaxis
     Dosage: 40 MG, QD
     Route: 042
     Dates: start: 20220616, end: 20220616
  10. ESOMEPRAZOLE SODIUM [Concomitant]
     Active Substance: ESOMEPRAZOLE SODIUM
     Dosage: 40 MG, QD
     Route: 042
     Dates: start: 20220623
  11. ESOMEPRAZOLE SODIUM [Concomitant]
     Active Substance: ESOMEPRAZOLE SODIUM
     Dosage: 40 MG, QD
     Route: 042
     Dates: start: 20220707, end: 20220707
  12. ESOMEPRAZOLE SODIUM [Concomitant]
     Active Substance: ESOMEPRAZOLE SODIUM
     Dosage: 40 MG, QD
     Route: 042
     Dates: start: 20220714, end: 20220714
  13. PALONOSETRON HYDROCHLORIDE [Concomitant]
     Active Substance: PALONOSETRON HYDROCHLORIDE
     Indication: Prophylaxis of nausea and vomiting
     Dosage: 0.25 MG, BID
     Route: 042
     Dates: start: 20220616, end: 20220616
  14. PALONOSETRON HYDROCHLORIDE [Concomitant]
     Active Substance: PALONOSETRON HYDROCHLORIDE
     Dosage: 0.25 MG
     Route: 042
     Dates: start: 20220623
  15. PALONOSETRON HYDROCHLORIDE [Concomitant]
     Active Substance: PALONOSETRON HYDROCHLORIDE
     Dosage: 0.25 MG, QD
     Route: 042
     Dates: start: 20220707, end: 20220707
  16. PALONOSETRON HYDROCHLORIDE [Concomitant]
     Active Substance: PALONOSETRON HYDROCHLORIDE
     Dosage: 0.25 MG, QD
     Route: 042
     Dates: start: 20220714, end: 20220714
  17. DEXAMETHASONE SODIUM PHOSPHATE [Concomitant]
     Active Substance: DEXAMETHASONE SODIUM PHOSPHATE
     Indication: Prophylaxis of nausea and vomiting
     Dosage: 10 MG, QD
     Route: 042
     Dates: start: 20220616, end: 20220616
  18. DEXAMETHASONE SODIUM PHOSPHATE [Concomitant]
     Active Substance: DEXAMETHASONE SODIUM PHOSPHATE
     Dosage: 10 MG, QD
     Route: 042
     Dates: start: 20220623
  19. DEXAMETHASONE SODIUM PHOSPHATE [Concomitant]
     Active Substance: DEXAMETHASONE SODIUM PHOSPHATE
     Dosage: 10 MG, QD
     Route: 042
     Dates: start: 20220707, end: 20220707
  20. DEXAMETHASONE SODIUM PHOSPHATE [Concomitant]
     Active Substance: DEXAMETHASONE SODIUM PHOSPHATE
     Dosage: 10 MG, QD
     Route: 042
     Dates: start: 20220714, end: 20220714
  21. BICYCLOL [Concomitant]
     Active Substance: BICYCLOL
     Indication: Aspartate aminotransferase increased
     Dosage: 50 MG, TID
     Route: 048
     Dates: start: 20220713
  22. BICYCLOL [Concomitant]
     Active Substance: BICYCLOL
     Indication: Gamma-glutamyltransferase increased
  23. CELECOXIB [Concomitant]
     Active Substance: CELECOXIB
     Indication: Chest pain
     Dosage: 200 MG, BID (Q12HRS)
     Route: 048
     Dates: start: 20220713
  24. CELECOXIB [Concomitant]
     Active Substance: CELECOXIB
     Indication: Pleural effusion
  25. CASEIN;FATS NOS;FIBRE, DIETARY;MALTODEXTRIN;MINERALS NOS;VITAMINS NOS [Concomitant]
     Indication: Nutritional supplementation
     Dosage: 55.80 G, TID
     Route: 048
     Dates: start: 20220622
  26. CASEIN;FATS NOS;FIBRE, DIETARY;MALTODEXTRIN;MINERALS NOS;VITAMINS NOS [Concomitant]
     Dosage: 55.8 G, TID
     Route: 048
     Dates: start: 20220713, end: 20220714
  27. SODIUM BICARBONATE [Concomitant]
     Active Substance: SODIUM BICARBONATE
     Indication: pH urine increased
     Dosage: 0.5 G, TID
     Route: 048
     Dates: start: 20220713, end: 20220714
  28. OXYCODONE AND ACETAMINOPHEN [Concomitant]
     Active Substance: ACETAMINOPHEN\OXYCODONE HYDROCHLORIDE
     Indication: Chest pain
     Dosage: 330 MG, QID (Q6HRS)
     Route: 048
     Dates: start: 20220622

REACTIONS (1)
  - Pneumonia [Recovered/Resolved]

NARRATIVE: CASE EVENT DATE: 20220719
